FAERS Safety Report 5001089-1 (Version None)
Quarter: 2006Q2

REPORT INFORMATION
  Report Type: 
  Country: None (occurrence: None)
  Receive Date: 20060512
  Receipt Date: 20060503
  Transmission Date: 20061013
  Serious: Yes (Other)
  Sender: FDA-Public Use
  Company Number: PHNR2006AU00739

PATIENT
  Sex: Male

DRUGS (1)
  1. CAFERGOT [Suspect]
     Indication: MIGRAINE
     Dosage: UNK, BID
     Route: 048

REACTIONS (3)
  - HYPOAESTHESIA [None]
  - NAUSEA [None]
  - VISION BLURRED [None]
